FAERS Safety Report 10466635 (Version 1)
Quarter: 2014Q3

REPORT INFORMATION
  Report Type: Spontaneous
  Country: US (occurrence: None)
  Receive Date: 20140919
  Receipt Date: 20140919
  Transmission Date: 20150326
  Serious: Yes (Hospitalization, Other)
  Sender: FDA-Public Use
  Company Number: None

PATIENT
  Age: 26 Year
  Sex: Female
  Weight: 80.74 kg

DRUGS (3)
  1. PRE-NATAL VITAMINS [Concomitant]
  2. TYLENOL [Concomitant]
     Active Substance: ACETAMINOPHEN
  3. NICOTROL [Suspect]
     Active Substance: NICOTINE
     Indication: SMOKING CESSATION THERAPY
     Dosage: 10MG CARTIDGE (1-4 DAILY
     Dates: start: 20140402, end: 20140428

REACTIONS (7)
  - Exposure during pregnancy [None]
  - Laboratory test abnormal [None]
  - Hypertonia neonatal [None]
  - Postmature baby [None]
  - Neonatal tachypnoea [None]
  - Irritability [None]
  - Tremor neonatal [None]

NARRATIVE: CASE EVENT DATE: 20140909
